FAERS Safety Report 23924303 (Version 1)
Quarter: 2024Q2

REPORT INFORMATION
  Report Type: Spontaneous
  Country: US (occurrence: PR)
  Receive Date: 20240531
  Receipt Date: 20240531
  Transmission Date: 20240716
  Serious: Yes (Disabling, Other)
  Sender: FDA-Public Use
  Company Number: US-GE HEALTHCARE LIFE SCIENCES-2019CSU002546

PATIENT

DRUGS (18)
  1. EOVIST [Suspect]
     Active Substance: GADOXETATE DISODIUM
     Indication: Angiogram
     Dosage: UNK
  2. EOVIST [Suspect]
     Active Substance: GADOXETATE DISODIUM
     Indication: Product used for unknown indication
     Dosage: UNK
  3. EOVIST [Suspect]
     Active Substance: GADOXETATE DISODIUM
     Indication: Magnetic resonance imaging
     Dosage: UNK
     Route: 042
  4. PRIMOVIST [Suspect]
     Active Substance: GADOXETATE DISODIUM
     Indication: Angiogram
     Route: 042
  5. PRIMOVIST [Suspect]
     Active Substance: GADOXETATE DISODIUM
     Indication: Magnetic resonance imaging
  6. PRIMOVIST [Suspect]
     Active Substance: GADOXETATE DISODIUM
     Indication: Product used for unknown indication
  7. GADOPENTETATE DIMEGLUMINE [Suspect]
     Active Substance: GADOPENTETATE DIMEGLUMINE
     Indication: Angiogram
     Route: 042
  8. GADOPENTETATE DIMEGLUMINE [Suspect]
     Active Substance: GADOPENTETATE DIMEGLUMINE
     Indication: Magnetic resonance imaging
  9. GADOPENTETATE DIMEGLUMINE [Suspect]
     Active Substance: GADOPENTETATE DIMEGLUMINE
     Indication: Product used for unknown indication
  10. MULTIHANCE [Suspect]
     Active Substance: GADOBENATE DIMEGLUMINE
     Indication: Angiogram
  11. MULTIHANCE [Suspect]
     Active Substance: GADOBENATE DIMEGLUMINE
     Indication: Magnetic resonance imaging
     Route: 042
  12. MULTIHANCE [Suspect]
     Active Substance: GADOBENATE DIMEGLUMINE
     Indication: Product used for unknown indication
  13. OPTIMARK [Suspect]
     Active Substance: GADOVERSETAMIDE
     Indication: Angiogram
  14. OPTIMARK [Suspect]
     Active Substance: GADOVERSETAMIDE
     Indication: Product used for unknown indication
     Dosage: UNK
  15. OPTIMARK [Suspect]
     Active Substance: GADOVERSETAMIDE
     Indication: Magnetic resonance imaging
     Dosage: UNK
     Route: 042
  16. OMNISCAN [Suspect]
     Active Substance: GADODIAMIDE
     Indication: Product used for unknown indication
  17. OMNISCAN [Suspect]
     Active Substance: GADODIAMIDE
     Indication: Magnetic resonance imaging
     Dosage: UNK
     Route: 042
  18. OMNISCAN [Suspect]
     Active Substance: GADODIAMIDE
     Indication: Angiogram

REACTIONS (15)
  - Inflammation [Unknown]
  - Hypoaesthesia [Unknown]
  - Asthenia [Unknown]
  - Anxiety [Not Recovered/Not Resolved]
  - Confusional state [Unknown]
  - Gadolinium deposition disease [Unknown]
  - Arthralgia [Unknown]
  - Emotional distress [Not Recovered/Not Resolved]
  - Injury [Not Recovered/Not Resolved]
  - Pain [Not Recovered/Not Resolved]
  - Paraesthesia [Unknown]
  - Burning sensation [Unknown]
  - Fatigue [Unknown]
  - Muscle spasms [Unknown]
  - Rash [Unknown]
